FAERS Safety Report 19140608 (Version 3)
Quarter: 2021Q3

REPORT INFORMATION
  Report Type: Spontaneous
  Country: US (occurrence: US)
  Receive Date: 20210415
  Receipt Date: 20210705
  Transmission Date: 20211014
  Serious: Yes (Other)
  Sender: FDA-Public Use
  Company Number: US-PFIZER INC-2021319020

PATIENT
  Age: 64 Year
  Sex: Female

DRUGS (2)
  1. XELJANZ XR [Suspect]
     Active Substance: TOFACITINIB CITRATE
     Indication: RHEUMATOID ARTHRITIS
     Dosage: 11 MG, 1X/DAY
     Route: 048
     Dates: start: 202002
  2. XELJANZ XR [Suspect]
     Active Substance: TOFACITINIB CITRATE
     Dosage: 11 MG, DAILY
     Route: 048
     Dates: start: 202102

REACTIONS (15)
  - Osteoarthritis [Unknown]
  - Renal disorder [Unknown]
  - Arthralgia [Unknown]
  - Vein disorder [Unknown]
  - Posture abnormal [Unknown]
  - Irritable bowel syndrome [Unknown]
  - Product dose omission issue [Unknown]
  - Spinal osteoarthritis [Unknown]
  - Colitis [Unknown]
  - Diverticulitis [Unknown]
  - Psoriatic arthropathy [Unknown]
  - Cardiac disorder [Unknown]
  - Pyrexia [Unknown]
  - Intervertebral disc protrusion [Unknown]
  - Pain [Unknown]

NARRATIVE: CASE EVENT DATE: 202103
